FAERS Safety Report 13646948 (Version 1)
Quarter: 2017Q2

REPORT INFORMATION
  Report Type: Spontaneous
  Country: US (occurrence: US)
  Receive Date: 20170613
  Receipt Date: 20170613
  Transmission Date: 20170830
  Serious: Yes (Hospitalization)
  Sender: FDA-Public Use
  Company Number: US-SA-2017SA102547

PATIENT
  Age: 74 Year
  Sex: Male
  Weight: 63.6 kg

DRUGS (4)
  1. BCG FOR IMMUNOTHERAPY [Suspect]
     Active Substance: BACILLUS CALMETTE-GUERIN ANTIGEN, UNSPECIFIED SUBSTRAIN
     Indication: BLADDER CANCER
     Route: 043
  2. BCG FOR IMMUNOTHERAPY [Suspect]
     Active Substance: BACILLUS CALMETTE-GUERIN ANTIGEN, UNSPECIFIED SUBSTRAIN
     Indication: BLADDER CANCER
     Route: 043
  3. BCG FOR IMMUNOTHERAPY [Suspect]
     Active Substance: BACILLUS CALMETTE-GUERIN ANTIGEN, UNSPECIFIED SUBSTRAIN
     Indication: BLADDER CANCER
     Route: 043
  4. BCG FOR IMMUNOTHERAPY [Suspect]
     Active Substance: BACILLUS CALMETTE-GUERIN ANTIGEN, UNSPECIFIED SUBSTRAIN
     Indication: BLADDER CANCER
     Route: 043

REACTIONS (18)
  - Brain abscess [Recovered/Resolved]
  - Mood altered [Recovered/Resolved]
  - Pain [Recovered/Resolved]
  - Dizziness [Recovered/Resolved]
  - Hydrocephalus [Recovered/Resolved]
  - Vertigo [Recovered/Resolved]
  - Nausea [Recovered/Resolved]
  - Central nervous system lesion [Recovered/Resolved]
  - Lethargy [Recovered/Resolved]
  - Urinary tract infection [Recovered/Resolved]
  - Intracranial mass [Recovered/Resolved]
  - Ataxia [Recovered/Resolved]
  - Hyperhidrosis [Recovered/Resolved]
  - Disseminated Bacillus Calmette-Guerin infection [Recovered/Resolved]
  - Hypoxia [Recovered/Resolved]
  - Cerebral haemorrhage [Recovered/Resolved]
  - Vomiting [Recovered/Resolved]
  - Weight decreased [Recovered/Resolved]
